FAERS Safety Report 5485600-2 (Version None)
Quarter: 2007Q4

REPORT INFORMATION
  Report Type: 
  Country: None (occurrence: None)
  Receive Date: 20071011
  Receipt Date: 20070725
  Transmission Date: 20080405
  Serious: Yes (Other)
  Sender: FDA-Public Use
  Company Number: TNZUK200700102

PATIENT
  Age: 32 Year
  Sex: Male
  Weight: 78 kg

DRUGS (4)
  1. INNOHEP [Suspect]
     Indication: DIALYSIS
     Dosage: (2500 IU, 3 X WEEKLY), INTRAVENOUS
     Route: 042
     Dates: start: 20070601
  2. KETOVITE (KETOVITE) [Concomitant]
  3. SEVELAMER (SEVELAMER) [Concomitant]
  4. ALFACALCIDOL (ALFA-CALCIDOL) [Concomitant]

REACTIONS (2)
  - CONVULSION [None]
  - HYPOTENSION [None]
